FAERS Safety Report 22169492 (Version 1)
Quarter: 2023Q2

REPORT INFORMATION
  Report Type: Report from Study
  Country: US (occurrence: US)
  Receive Date: 20230404
  Receipt Date: 20230404
  Transmission Date: 20230722
  Serious: Yes (Other)
  Sender: FDA-Public Use
  Company Number: US-ABBVIE-4713958

PATIENT
  Age: 71 Year
  Sex: Male

DRUGS (2)
  1. HUMIRA [Suspect]
     Active Substance: ADALIMUMAB
     Indication: Psoriasis
     Route: 058
     Dates: start: 200910
  2. HUMIRA [Suspect]
     Active Substance: ADALIMUMAB
     Indication: Ankylosing spondylitis
     Route: 058

REACTIONS (3)
  - Obstruction [Unknown]
  - Stent placement [Unknown]
  - Condition aggravated [Unknown]

NARRATIVE: CASE EVENT DATE: 20220901
